FAERS Safety Report 4876395-1 (Version None)
Quarter: 2005Q4

REPORT INFORMATION
  Report Type: 
  Country: None (occurrence: None)
  Receive Date: 20051206
  Receipt Date: 20051024
  Transmission Date: 20060501
  Serious: No
  Sender: FDA-Public Use
  Company Number: USA0510111054

PATIENT
  Age: 64 Year
  Sex: Female
  Weight: 76 kg

DRUGS (6)
  1. CYMBALTA [Suspect]
     Indication: DEPRESSION
     Dosage: 20 MG DAY
     Dates: start: 20051008
  2. ACTONEL [Concomitant]
  3. LIPITOR [Concomitant]
  4. HYDROCHLOROTHIAZIDE [Concomitant]
  5. MULTIVITAMINS NOS (MULTIVITAMINS NOS) [Concomitant]
  6. ASPIRIN [Concomitant]

REACTIONS (13)
  - ADVERSE DRUG REACTION [None]
  - CONFUSIONAL STATE [None]
  - CONSTIPATION [None]
  - DEPRESSED MOOD [None]
  - DRY MOUTH [None]
  - DYSURIA [None]
  - FATIGUE [None]
  - FEELING ABNORMAL [None]
  - INSOMNIA [None]
  - NAUSEA [None]
  - SOMNOLENCE [None]
  - URINARY RETENTION [None]
  - VISION BLURRED [None]
